FAERS Safety Report 8472113-9 (Version None)
Quarter: 2012Q2

REPORT INFORMATION
  Report Type: 
  Country: None (occurrence: None)
  Receive Date: 20120627
  Receipt Date: 20120621
  Transmission Date: 20120825
  Serious: Yes (Hospitalization)
  Sender: FDA-Public Use
  Company Number: JP-AMGEN-JPNCT2012030664

PATIENT
  Age: 40 Year
  Sex: Female
  Weight: 63 kg

DRUGS (12)
  1. ATOLANT [Concomitant]
     Indication: INFECTION
     Dosage: UNK
     Route: 048
     Dates: start: 20090101
  2. UREPEARL [Concomitant]
     Indication: ECZEMA
     Dosage: UNK
     Route: 048
     Dates: start: 20090101
  3. BLINDED DENOSUMAB [Suspect]
     Indication: RHEUMATOID ARTHRITIS
     Dosage: UNK
     Route: 058
     Dates: start: 20110827
  4. LOCOID [Concomitant]
     Indication: ECZEMA
     Dosage: UNK UNK, QD
     Route: 048
     Dates: start: 20090101
  5. CALCICHEW D3 [Concomitant]
     Dosage: UNK UNK, QD
     Route: 048
     Dates: start: 20110803
  6. CABERGOLINE [Concomitant]
     Indication: HYPERPROLACTINAEMIA
     Dosage: 0.25 MG, QWK
     Route: 048
     Dates: start: 20110615
  7. VOLLEY [Concomitant]
     Indication: INFECTION
     Dosage: UNK UNK, QD
     Route: 048
     Dates: start: 20090101
  8. LOXONIN [Concomitant]
     Indication: HEADACHE
     Dosage: AS NEEDED
     Route: 048
  9. PLACEBO [Suspect]
     Indication: RHEUMATOID ARTHRITIS
     Dosage: UNK
     Route: 058
     Dates: start: 20110827
  10. METHOTREXATE [Concomitant]
     Indication: RHEUMATOID ARTHRITIS
     Dosage: 6MG/WEEK
     Route: 048
     Dates: start: 20110904
  11. FOLIAMIN [Concomitant]
     Indication: PROPHYLAXIS
     Dosage: 5MG/WEEK
     Route: 048
     Dates: start: 20110928
  12. PURSENNID [Concomitant]
     Indication: CONSTIPATION
     Dosage: 24 MG, UNK
     Route: 048
     Dates: start: 20111025

REACTIONS (1)
  - INTERVERTEBRAL DISC PROTRUSION [None]
